FAERS Safety Report 14587917 (Version 1)
Quarter: 2018Q1

REPORT INFORMATION
  Report Type: Spontaneous
  Country: US (occurrence: US)
  Receive Date: 20180301
  Receipt Date: 20180301
  Transmission Date: 20180509
  Serious: No
  Sender: FDA-Public Use
  Company Number: US-PERRIGO-17US003408

PATIENT
  Age: 36 Year
  Sex: Male
  Weight: 74.83 kg

DRUGS (5)
  1. VITAMINS                           /90003601/ [Concomitant]
     Active Substance: VITAMINS
     Indication: SUPPLEMENTATION THERAPY
     Dosage: UNK
     Dates: start: 2007
  2. PODOFILOX. [Suspect]
     Active Substance: PODOFILOX
     Dosage: 1 DROP, BID
     Route: 061
     Dates: start: 201703, end: 201703
  3. PODOFILOX. [Suspect]
     Active Substance: PODOFILOX
     Dosage: 1 DROP, BID
     Route: 061
     Dates: start: 20170416, end: 20170418
  4. PODOFILOX. [Suspect]
     Active Substance: PODOFILOX
     Dosage: 1 DROP, BID
     Route: 061
     Dates: start: 20170316, end: 20170318
  5. PODOFILOX. [Suspect]
     Active Substance: PODOFILOX
     Indication: ACROCHORDON
     Dosage: 1 DROP, BID
     Route: 061
     Dates: start: 2014, end: 2014

REACTIONS (2)
  - Drug ineffective for unapproved indication [Unknown]
  - Expired product administered [Recovered/Resolved]

NARRATIVE: CASE EVENT DATE: 2014
